FAERS Safety Report 4285138-4 (Version None)
Quarter: 2004Q1

REPORT INFORMATION
  Report Type: 
  Country: None (occurrence: None)
  Receive Date: 20040202
  Receipt Date: 20031202
  Transmission Date: 20041129
  Serious: Yes (Hospitalization, Other)
  Sender: FDA-Public Use
  Company Number: USA-2003-0010574

PATIENT
  Age: 48 Year
  Sex: Male
  Weight: 79.4 kg

DRUGS (9)
  1. OXYCONTIN [Suspect]
     Indication: PAIN
     Dosage: SEE IMAGE
     Route: 048
  2. AMBIEN [Concomitant]
  3. OXYCODONE HCL [Concomitant]
  4. PAXIL [Concomitant]
  5. VIOXX [Concomitant]
  6. XANAX [Concomitant]
  7. DEPAKOTE [Concomitant]
  8. LEXAPRO [Concomitant]
  9. KLONOPIN [Concomitant]

REACTIONS (20)
  - ABNORMAL BEHAVIOUR [None]
  - AFFECT LABILITY [None]
  - AGITATION [None]
  - AKATHISIA [None]
  - ANGER [None]
  - ANXIETY [None]
  - DRUG DEPENDENCE [None]
  - DYSPHONIA [None]
  - DYSURIA [None]
  - EMOTIONAL DISTRESS [None]
  - ERYTHEMA [None]
  - HALLUCINATION, VISUAL [None]
  - IRRITABILITY [None]
  - LYMPHADENITIS [None]
  - NERVOUSNESS [None]
  - OEDEMA [None]
  - PAIN [None]
  - POLYSUBSTANCE ABUSE [None]
  - PRESSURE OF SPEECH [None]
  - ROAD TRAFFIC ACCIDENT [None]
